FAERS Safety Report 18019355 (Version 1)
Quarter: 2020Q3

REPORT INFORMATION
  Report Type: Spontaneous
  Country: US (occurrence: US)
  Receive Date: 20200714
  Receipt Date: 20200714
  Transmission Date: 20201103
  Serious: Yes (Hospitalization)
  Sender: FDA-Public Use
  Company Number: None

PATIENT
  Age: 76 Year
  Sex: Male
  Weight: 71 kg

DRUGS (1)
  1. OSIMERTINIB. [Suspect]
     Active Substance: OSIMERTINIB
     Indication: PNEUMONITIS
     Route: 048
     Dates: start: 20200309, end: 20200527

REACTIONS (5)
  - Hypoxia [None]
  - Dyspnoea [None]
  - Pneumonitis [None]
  - Infection [None]
  - Tachypnoea [None]

NARRATIVE: CASE EVENT DATE: 20200527
